FAERS Safety Report 9157728 (Version 1)
Quarter: 2013Q1

REPORT INFORMATION
  Report Type: Spontaneous
  Country: JP (occurrence: JP)
  Receive Date: 20130312
  Receipt Date: 20130312
  Transmission Date: 20140127
  Serious: Yes (Other)
  Sender: FDA-Public Use
  Company Number: JP-MERCK-1206USA00453

PATIENT
  Age: 77 Year
  Sex: Male
  Weight: 79 kg

DRUGS (4)
  1. JANUVIA TABLETS 25MG [Suspect]
     Indication: DIABETES MELLITUS
     Dosage: 25 MG, QD
     Route: 048
     Dates: start: 20110228, end: 20110803
  2. JANUVIA TABLETS 25MG [Suspect]
     Dosage: 50 MG, QD
     Route: 048
     Dates: start: 20110804, end: 20111211
  3. AMARYL [Concomitant]
     Dosage: 2 MG, QD
     Route: 048
  4. METGLUCO [Concomitant]
     Indication: DIABETES MELLITUS
     Dosage: 500 MG, UNK
     Route: 048
     Dates: start: 20090611

REACTIONS (1)
  - Primary hypothyroidism [Recovered/Resolved]
